FAERS Safety Report 6446953-1 (Version None)
Quarter: 2009Q4

REPORT INFORMATION
  Report Type: 
  Country: None (occurrence: None)
  Receive Date: 20091119
  Receipt Date: 20091112
  Transmission Date: 20100525
  Serious: Yes (Hospitalization)
  Sender: FDA-Public Use
  Company Number: AU-SANOFI-AVENTIS-2009SA001426

PATIENT
  Age: 81 Year
  Sex: Female

DRUGS (7)
  1. PLAVIX [Suspect]
     Route: 048
     Dates: start: 20071101
  2. CAPANOL [Concomitant]
     Indication: DRUG USE FOR UNKNOWN INDICATION
  3. ASPIRIN [Concomitant]
     Indication: DRUG USE FOR UNKNOWN INDICATION
  4. SOMAC [Concomitant]
     Indication: DRUG USE FOR UNKNOWN INDICATION
  5. GLUCOSAMINE [Concomitant]
  6. CALTRATE [Concomitant]
  7. PREMARIN [Concomitant]
     Indication: DRUG USE FOR UNKNOWN INDICATION

REACTIONS (2)
  - DIVERTICULITIS [None]
  - PNEUMONIA [None]
